FAERS Safety Report 9714224 (Version 1)
Quarter: 2013Q4

REPORT INFORMATION
  Report Type: Spontaneous
  Country: US (occurrence: US)
  Receive Date: 20131126
  Receipt Date: 20131126
  Transmission Date: 20140711
  Serious: No
  Sender: FDA-Public Use
  Company Number: US-GILEAD-2008-0019421

PATIENT
  Sex: Female
  Weight: 60.78 kg

DRUGS (15)
  1. LETAIRIS [Suspect]
     Indication: PULMONARY ARTERIAL HYPERTENSION
     Route: 048
     Dates: start: 20081125
  2. COUMADIN [Concomitant]
     Route: 048
  3. COUMADIN [Concomitant]
     Route: 048
  4. LASIX [Concomitant]
     Route: 048
  5. COZAAR [Concomitant]
     Route: 048
  6. ADVAIR [Concomitant]
  7. SINGULAIR [Concomitant]
     Route: 048
  8. LIPITOR [Concomitant]
     Route: 048
  9. ASPIRIN [Concomitant]
     Route: 048
  10. CODEINE PHOSPHATE [Concomitant]
     Route: 048
  11. XANAX [Concomitant]
     Route: 048
  12. AMBIEN [Concomitant]
     Route: 048
  13. EFFEXOR XR [Concomitant]
     Route: 048
  14. AMITRIPTYLINE [Concomitant]
     Route: 048
  15. PRILOSEC [Concomitant]
     Route: 048

REACTIONS (1)
  - Oedema [None]
